FAERS Safety Report 20176166 (Version 1)
Quarter: 2021Q4

REPORT INFORMATION
  Report Type: Spontaneous
  Country: US (occurrence: None)
  Receive Date: 20211210
  Receipt Date: 20211210
  Transmission Date: 20220303
  Serious: No
  Sender: FDA-Public Use
  Company Number: None

PATIENT
  Age: 58 Year
  Sex: Female
  Weight: 63 kg

DRUGS (1)
  1. ACETAMINOPHEN\HYDROCODONE [Suspect]
     Active Substance: ACETAMINOPHEN\HYDROCODONE
     Indication: Spinal deformity
     Dosage: OTHER QUANTITY : 1 TABLET(S);?FREQUENCY : EVERY 4 HOURS;?
     Route: 048
     Dates: start: 20211115

REACTIONS (7)
  - Inadequate analgesia [None]
  - Product substitution issue [None]
  - Suspected product contamination [None]
  - Impaired quality of life [None]
  - Headache [None]
  - Nausea [None]
  - Nervousness [None]

NARRATIVE: CASE EVENT DATE: 20211115
